FAERS Safety Report 25127803 (Version 3)
Quarter: 2025Q2

REPORT INFORMATION
  Report Type: Report from Study
  Country: US (occurrence: US)
  Receive Date: 20250327
  Receipt Date: 20250414
  Transmission Date: 20250717
  Serious: No
  Sender: AMGEN
  Company Number: US-AMGEN-USASP2025057776

PATIENT
  Age: 66 Year
  Sex: Male

DRUGS (3)
  1. AIMOVIG [Suspect]
     Active Substance: ERENUMAB-AOOE
     Indication: Nerve injury
     Dosage: 70 MILLIGRAM, QMO
     Route: 030
     Dates: start: 202502
  2. AIMOVIG [Suspect]
     Active Substance: ERENUMAB-AOOE
     Indication: Off label use
     Dosage: 70 MILLIGRAM, QMO
     Route: 030
  3. AIMOVIG [Suspect]
     Active Substance: ERENUMAB-AOOE
     Indication: Migraine
     Dosage: 70 MILLIGRAM, QMO
     Route: 030

REACTIONS (7)
  - Accidental exposure to product [Unknown]
  - Drug dose omission by device [Unknown]
  - Visual impairment [Unknown]
  - Off label use [Unknown]
  - Incorrect route of product administration [Unknown]
  - Migraine [Not Recovered/Not Resolved]
  - Therapy interrupted [Unknown]

NARRATIVE: CASE EVENT DATE: 20250101
